FAERS Safety Report 11025848 (Version 1)
Quarter: 2015Q2

REPORT INFORMATION
  Report Type: Spontaneous
  Country: US (occurrence: None)
  Receive Date: 20150413
  Receipt Date: 20150413
  Transmission Date: 20150821
  Serious: Yes (Hospitalization)
  Sender: FDA-Public Use
  Company Number: None

PATIENT
  Age: 69 Year
  Sex: Male
  Weight: 80.74 kg

DRUGS (10)
  1. BUPROPION HCL [Concomitant]
     Active Substance: BUPROPION HYDROCHLORIDE
  2. CHOLECALCIFEROL (VIT D3) [Concomitant]
  3. METOPROLOL TARTRATE. [Concomitant]
     Active Substance: METOPROLOL TARTRATE
  4. ROSUVASTATIN CA [Concomitant]
     Active Substance: ROSUVASTATIN CALCIUM
  5. OMEPRAZOLE 20MG [Suspect]
     Active Substance: OMEPRAZOLE
     Indication: GASTROOESOPHAGEAL REFLUX DISEASE
     Route: 048
  6. LEVOTHYROXINE NA [Concomitant]
  7. POTASSIUM CHLORIDE. [Concomitant]
     Active Substance: POTASSIUM CHLORIDE
  8. AMLODIPINE BESYLATE. [Concomitant]
     Active Substance: AMLODIPINE BESYLATE
  9. FENOFIBRATE. [Concomitant]
     Active Substance: FENOFIBRATE
  10. LORAZEPAM. [Concomitant]
     Active Substance: LORAZEPAM

REACTIONS (3)
  - Blood magnesium decreased [None]
  - Diarrhoea [None]
  - Hypokalaemia [None]

NARRATIVE: CASE EVENT DATE: 20140708
